FAERS Safety Report 9852599 (Version 1)
Quarter: 2014Q1

REPORT INFORMATION
  Report Type: Spontaneous
  Country: US (occurrence: US)
  Receive Date: 20140129
  Receipt Date: 20140129
  Transmission Date: 20141002
  Serious: Yes (Hospitalization)
  Sender: FDA-Public Use
  Company Number: US-ASTRAZENECA-2014SE04912

PATIENT
  Age: 62 Year
  Sex: Female
  Weight: 61.7 kg

DRUGS (9)
  1. CRESTOR [Suspect]
     Indication: BLOOD CHOLESTEROL INCREASED
     Route: 048
     Dates: start: 20121001
  2. BRILINTA [Suspect]
     Indication: STENT PLACEMENT
     Route: 048
     Dates: start: 20121001
  3. IRON [Suspect]
     Indication: BLOOD IRON DECREASED
     Route: 065
  4. ASPIRIN [Concomitant]
     Indication: STENT PLACEMENT
     Route: 048
     Dates: start: 20121001
  5. RENEXA [Concomitant]
     Indication: CARDIAC DISORDER
     Route: 048
     Dates: start: 20121001
  6. NORVASC [Concomitant]
     Indication: HYPERTENSION
     Route: 048
     Dates: start: 20121001
  7. LABETALOL [Concomitant]
     Indication: HYPERTENSION
  8. VIT D [Concomitant]
     Indication: VITAMIN D DECREASED
     Route: 048
     Dates: start: 2013
  9. LIPTIOR [Concomitant]
     Indication: BLOOD CHOLESTEROL ABNORMAL

REACTIONS (8)
  - Myocardial infarction [Unknown]
  - Blood iron decreased [Unknown]
  - Dyspnoea [Unknown]
  - Faeces discoloured [Unknown]
  - Muscular weakness [Unknown]
  - Labile blood pressure [Unknown]
  - Vitamin D decreased [Unknown]
  - Constipation [Unknown]
